FAERS Safety Report 12029195 (Version 1)
Quarter: 2016Q1

REPORT INFORMATION
  Report Type: Report from Study
  Country: US (occurrence: US)
  Receive Date: 20160207
  Receipt Date: 20160207
  Transmission Date: 20160526
  Serious: Yes (Hospitalization)
  Sender: FDA-Public Use
  Company Number: US-ABBVIE-15K-163-1495837-00

PATIENT
  Age: 61 Year
  Sex: Female
  Weight: 46.76 kg

DRUGS (2)
  1. METOCLOPRAMIDE. [Concomitant]
     Active Substance: METOCLOPRAMIDE
     Indication: PRODUCT USED FOR UNKNOWN INDICATION
  2. HUMIRA [Suspect]
     Active Substance: ADALIMUMAB
     Indication: PSORIASIS
     Route: 058
     Dates: start: 2013, end: 201510

REACTIONS (5)
  - Malaise [Not Recovered/Not Resolved]
  - Platelet count decreased [Unknown]
  - Kidney infection [Recovered/Resolved]
  - Urinary tract infection [Recovered/Resolved]
  - Leukaemia [Unknown]

NARRATIVE: CASE EVENT DATE: 20150930
